FAERS Safety Report 13090528 (Version 2)
Quarter: 2017Q1

REPORT INFORMATION
  Report Type: Report from Study
  Country: US (occurrence: US)
  Receive Date: 20170105
  Receipt Date: 20170119
  Transmission Date: 20170428
  Serious: Yes (Hospitalization, Other)
  Sender: FDA-Public Use
  Company Number: US-GILEAD-2017-0251920

PATIENT
  Age: 15 Year
  Sex: Male

DRUGS (14)
  1. CETIRIZINE [Concomitant]
     Active Substance: CETIRIZINE HYDROCHLORIDE
  2. LANSOPRAZOLE. [Concomitant]
     Active Substance: LANSOPRAZOLE
  3. AZITHROMYCIN ANHYDROUS. [Concomitant]
     Active Substance: AZITHROMYCIN ANHYDROUS
  4. CYPROHEPTADINE. [Concomitant]
     Active Substance: CYPROHEPTADINE
  5. AZTREONAM LYSINE [Suspect]
     Active Substance: AZTREONAM LYSINE
     Dosage: 1 DF, TID
     Route: 055
     Dates: start: 20160229
  6. PULMOZYME [Concomitant]
     Active Substance: DORNASE ALFA
  7. SODIUM CHLORIDE. [Concomitant]
     Active Substance: SODIUM CHLORIDE
  8. VITAMIN D3 [Concomitant]
     Active Substance: CHOLECALCIFEROL
  9. PROAIR HFA [Concomitant]
     Active Substance: ALBUTEROL SULFATE
  10. AZTREONAM LYSINE [Suspect]
     Active Substance: AZTREONAM LYSINE
     Indication: CYSTIC FIBROSIS
     Dosage: 1 DF, TID
     Route: 055
     Dates: start: 20150520
  11. COLISTIMETHATE [Concomitant]
     Active Substance: COLISTIMETHATE SODIUM
  12. STERILE WATER [Concomitant]
     Active Substance: WATER
  13. CREON [Concomitant]
     Active Substance: PANCRELIPASE AMYLASE\PANCRELIPASE LIPASE\PANCRELIPASE PROTEASE
  14. ALBUTEROL                          /00139501/ [Concomitant]
     Active Substance: ALBUTEROL

REACTIONS (1)
  - Cystic fibrosis [Unknown]
